FAERS Safety Report 5084959-8 (Version None)
Quarter: 2006Q3

REPORT INFORMATION
  Report Type: 
  Country: None (occurrence: None)
  Receive Date: 20060821
  Receipt Date: 20060811
  Transmission Date: 20061208
  Serious: Yes (Hospitalization, Other)
  Sender: FDA-Public Use
  Company Number: ES-ABBOTT-06P-144-0340264-00

PATIENT
  Age: 29 Year
  Sex: Female

DRUGS (2)
  1. DEPAKENE [Suspect]
     Indication: STATUS EPILEPTICUS
     Route: 048
     Dates: start: 20010101
  2. LAMOTRIGINE [Interacting]
     Indication: STATUS EPILEPTICUS
     Route: 048
     Dates: start: 20060515, end: 20060528

REACTIONS (6)
  - ACUTE TONSILLITIS [None]
  - DIZZINESS [None]
  - DRUG INTERACTION [None]
  - PRURITUS [None]
  - RASH [None]
  - SOMNOLENCE [None]
